FAERS Safety Report 8025945-5 (Version None)
Quarter: 2012Q1

REPORT INFORMATION
  Report Type: 
  Country: None (occurrence: None)
  Receive Date: 20120105
  Receipt Date: 20110908
  Transmission Date: 20120608
  Serious: No
  Sender: FDA-Public Use
  Company Number: US-ABBOTT-11P-163-0853870-00

PATIENT
  Sex: Female
  Weight: 59.928 kg

DRUGS (3)
  1. SYNTHROID [Suspect]
     Indication: HYPOTHYROIDISM
     Dates: start: 19940101, end: 20020101
  2. SYNTHROID [Suspect]
     Dates: start: 20090601, end: 20100101
  3. CALCIUM ACETATE [Concomitant]
     Indication: MINERAL SUPPLEMENTATION

REACTIONS (2)
  - BONE DENSITY DECREASED [None]
  - BONE PAIN [None]
